FAERS Safety Report 9107674 (Version 1)
Quarter: 2013Q1

REPORT INFORMATION
  Report Type: Report from Study
  Country: US (occurrence: US)
  Receive Date: 20130221
  Receipt Date: 20130221
  Transmission Date: 20140127
  Serious: Yes (Other)
  Sender: FDA-Public Use
  Company Number: US-ABBOTT-13P-163-1049445-00

PATIENT
  Sex: Female

DRUGS (2)
  1. HUMIRA [Suspect]
     Indication: RHEUMATOID ARTHRITIS
     Dates: start: 201208
  2. HUMIRA [Suspect]
     Dates: start: 201212

REACTIONS (2)
  - Carpal tunnel syndrome [Recovered/Resolved]
  - Rheumatoid arthritis [Unknown]
